FAERS Safety Report 23775608 (Version 2)
Quarter: 2024Q2

REPORT INFORMATION
  Report Type: Spontaneous
  Country: US (occurrence: US)
  Receive Date: 20240423
  Receipt Date: 20240619
  Transmission Date: 20240716
  Serious: Yes (Other)
  Sender: FDA-Public Use
  Company Number: US-Blueprint Medicines Corporation-3207

PATIENT
  Sex: Female

DRUGS (1)
  1. AYVAKIT [Suspect]
     Active Substance: AVAPRITINIB
     Indication: Systemic mastocytosis
     Route: 065
     Dates: start: 20240322

REACTIONS (7)
  - Systemic lupus erythematosus [Unknown]
  - Autoimmune disorder [Unknown]
  - Peripheral swelling [Unknown]
  - Movement disorder [Unknown]
  - Headache [Unknown]
  - Visual impairment [Unknown]
  - Swelling [Unknown]
